FAERS Safety Report 9479627 (Version 2)
Quarter: 2013Q4

REPORT INFORMATION
  Report Type: Spontaneous
  Country: GB (occurrence: GB)
  Receive Date: 20130827
  Receipt Date: 20131004
  Transmission Date: 20140711
  Serious: Yes (Other)
  Sender: FDA-Public Use
  Company Number: PHFR2013GB004877

PATIENT
  Sex: Male

DRUGS (2)
  1. GILENYA [Suspect]
     Indication: MULTIPLE SCLEROSIS
     Dosage: UNK
     Route: 048
     Dates: start: 20130814
  2. MODAFINIL [Concomitant]
     Dosage: UNK, PRN

REACTIONS (5)
  - Electrocardiogram abnormal [Unknown]
  - Blood pressure decreased [Recovering/Resolving]
  - Memory impairment [Unknown]
  - Troponin increased [Unknown]
  - Bradycardia [Unknown]
